FAERS Safety Report 8407430-1 (Version None)
Quarter: 2012Q2

REPORT INFORMATION
  Report Type: 
  Country: None (occurrence: None)
  Receive Date: 20120604
  Receipt Date: 20120524
  Transmission Date: 20120825
  Serious: Yes (Other)
  Sender: FDA-Public Use
  Company Number: JP-GILEAD-2012-0055803

PATIENT
  Age: 79 Year
  Sex: Female

DRUGS (4)
  1. REVATIO [Concomitant]
     Indication: PULMONARY ARTERIAL HYPERTENSION
     Dosage: 80MCG PER DAY
     Route: 048
     Dates: start: 20120428
  2. BERAPROST [Concomitant]
     Indication: PULMONARY ARTERIAL HYPERTENSION
     Dosage: 120MCG PER DAY
     Route: 048
     Dates: start: 20120505
  3. LETAIRIS [Suspect]
     Indication: PULMONARY ARTERIAL HYPERTENSION
     Dosage: 2.5MG PER DAY
     Route: 048
     Dates: start: 20120511, end: 20120514
  4. LANSOPRAZOLE [Concomitant]
     Indication: GASTROOESOPHAGEAL REFLUX DISEASE
     Route: 048

REACTIONS (2)
  - URINARY TRACT INFECTION [None]
  - ANAEMIA [None]
